FAERS Safety Report 22397746 (Version 1)
Quarter: 2023Q2

REPORT INFORMATION
  Report Type: Spontaneous
  Country: US (occurrence: US)
  Receive Date: 20230602
  Receipt Date: 20230602
  Transmission Date: 20230722
  Serious: No
  Sender: FDA-Public Use
  Company Number: US-UNITED THERAPEUTICS-UNT-2023-013503

PATIENT
  Age: 45 Year
  Sex: Female
  Weight: 86.168 kg

DRUGS (3)
  1. REMODULIN [Suspect]
     Active Substance: TREPROSTINIL
     Indication: Pulmonary arterial hypertension
     Dosage: 0.0874 ?G/KG (PHARMACY PRE-FILLED WITH 3 ML PER CASSETTE; PUMP RATE OF 40 MCL PER HOUR), CONTINUING
     Route: 058
  2. REMODULIN [Suspect]
     Active Substance: TREPROSTINIL
     Dosage: UNK, CONTINUING
     Route: 058
     Dates: start: 20221116
  3. REMODULIN [Suspect]
     Active Substance: TREPROSTINIL
     Indication: Pulmonary arterial hypertension
     Dosage: 0.0874 ?G/KG (SELF FILL WITH 3 ML PER CASSETTE; RATE 40 MCL PER HOUR), CONTINUING
     Route: 058

REACTIONS (8)
  - Fluid retention [Unknown]
  - Blood potassium decreased [Unknown]
  - Product distribution issue [Recovered/Resolved]
  - Product use issue [Unknown]
  - Wrong technique in product usage process [Recovered/Resolved]
  - Device leakage [Recovered/Resolved]
  - Device leakage [Recovered/Resolved]
  - Device leakage [Recovered/Resolved]

NARRATIVE: CASE EVENT DATE: 20230501
